FAERS Safety Report 24183692 (Version 2)
Quarter: 2024Q3

REPORT INFORMATION
  Report Type: Spontaneous
  Country: US (occurrence: US)
  Receive Date: 20240807
  Receipt Date: 20240906
  Transmission Date: 20241017
  Serious: Yes (Hospitalization, Other)
  Sender: GILEAD
  Company Number: US-GILEAD-2024-0682944

PATIENT
  Age: 71 Year
  Sex: Male
  Weight: 103.2 kg

DRUGS (28)
  1. YESCARTA [Suspect]
     Active Substance: AXICABTAGENE CILOLEUCEL
     Indication: Diffuse large B-cell lymphoma
     Dosage: 2 X 10 ^8 AUTOLOGOUS ANTI CD19 CART T CELLS IN 5% DMSO
     Route: 042
     Dates: start: 20240506, end: 20240506
  2. PRADAXA [Concomitant]
     Active Substance: DABIGATRAN ETEXILATE MESYLATE
  3. ALLOPURINOL [Concomitant]
     Active Substance: ALLOPURINOL
  4. TAMSULOSIN [Concomitant]
     Active Substance: TAMSULOSIN
  5. DIPHENHYDRAMINE [Concomitant]
     Active Substance: DIPHENHYDRAMINE
  6. OMEGA-3 FATTY ACIDS [Concomitant]
     Active Substance: OMEGA-3 FATTY ACIDS
  7. COQ10 UBIQUINOL [Concomitant]
  8. PEPCID AC [Concomitant]
     Active Substance: FAMOTIDINE
  9. METOPROLOL [Concomitant]
     Active Substance: METOPROLOL
  10. VITAMINS [Concomitant]
     Active Substance: VITAMINS
  11. LOSARTAN [Concomitant]
     Active Substance: LOSARTAN\LOSARTAN POTASSIUM
  12. METHYLPREDNISOLONE [Concomitant]
     Active Substance: METHYLPREDNISOLONE
  13. AMLODIPINE [Concomitant]
     Active Substance: AMLODIPINE BESYLATE
  14. LIDOCAINE\PRILOCAINE [Concomitant]
     Active Substance: LIDOCAINE\PRILOCAINE
  15. VALACYCLOVIR [Concomitant]
     Active Substance: VALACYCLOVIR HYDROCHLORIDE
  16. FUROSEMIDE [Concomitant]
     Active Substance: FUROSEMIDE
  17. ATORVASTATIN [Concomitant]
     Active Substance: ATORVASTATIN
  18. VITAMIN D3 [Concomitant]
     Active Substance: CHOLECALCIFEROL
  19. VITAMIN C [Concomitant]
     Active Substance: ASCORBIC ACID
  20. SODIUM CHLORIDE [Concomitant]
     Active Substance: SODIUM CHLORIDE
  21. FLUCONAZOLE [Concomitant]
     Active Substance: FLUCONAZOLE
  22. ACYCLOVIR [Concomitant]
     Active Substance: ACYCLOVIR
  23. ONDANSETRON [Concomitant]
     Active Substance: ONDANSETRON
  24. OLANZAPINE [Concomitant]
     Active Substance: OLANZAPINE
  25. CYCLOPHOSPHAMIDE [Concomitant]
     Active Substance: CYCLOPHOSPHAMIDE
  26. HEPARIN [Concomitant]
     Active Substance: HEPARIN SODIUM
  27. FLUDARABINE [Concomitant]
     Active Substance: FLUDARABINE PHOSPHATE
  28. TRAMADOL [Concomitant]
     Active Substance: TRAMADOL\TRAMADOL HYDROCHLORIDE

REACTIONS (1)
  - Cytokine release syndrome [Recovered/Resolved]

NARRATIVE: CASE EVENT DATE: 20240507
